FAERS Safety Report 13999729 (Version 2)
Quarter: 2018Q1

REPORT INFORMATION
  Report Type: Report from Study
  Country: CO (occurrence: CO)
  Receive Date: 20170922
  Receipt Date: 20180309
  Transmission Date: 20180508
  Serious: Yes (Hospitalization, Other)
  Sender: FDA-Public Use
  Company Number: CO-AMGEN-COLSL2017090625

PATIENT
  Age: 46 Year
  Sex: Male

DRUGS (1)
  1. MIMPARA [Suspect]
     Active Substance: CINACALCET HYDROCHLORIDE
     Indication: HYPERPARATHYROIDISM SECONDARY
     Dosage: 90 MG, QD
     Route: 048
     Dates: start: 20151217, end: 20171202

REACTIONS (6)
  - Fall [Unknown]
  - Hip fracture [Not Recovered/Not Resolved]
  - Unevaluable event [Unknown]
  - Off label use [Not Recovered/Not Resolved]
  - Drug ineffective [Unknown]
  - Blood parathyroid hormone increased [Not Recovered/Not Resolved]

NARRATIVE: CASE EVENT DATE: 20170607
